FAERS Safety Report 25637662 (Version 2)
Quarter: 2025Q3

REPORT INFORMATION
  Report Type: Report from Study
  Country: KR (occurrence: KR)
  Receive Date: 20250804
  Receipt Date: 20250814
  Transmission Date: 20251020
  Serious: No
  Sender: AMGEN
  Company Number: KR-AMGEN-KORNI2025035934

PATIENT
  Age: 64 Year
  Sex: Male

DRUGS (2)
  1. TARLATAMAB [Suspect]
     Active Substance: TARLATAMAB
     Indication: Small cell lung cancer
     Route: 040
     Dates: start: 20241022
  2. TARLATAMAB [Suspect]
     Active Substance: TARLATAMAB
     Route: 040
     Dates: start: 20241029, end: 20241210

REACTIONS (1)
  - Disease progression [Unknown]

NARRATIVE: CASE EVENT DATE: 20241218
